FAERS Safety Report 6362233-7 (Version None)
Quarter: 2009Q3

REPORT INFORMATION
  Report Type: 
  Country: None (occurrence: None)
  Receive Date: 20090918
  Receipt Date: 20090717
  Transmission Date: 20100115
  Serious: No
  Sender: FDA-Public Use
  Company Number: US-ABBOTT-09P-163-0586385-00

PATIENT
  Age: 27 Year
  Sex: Female

DRUGS (3)
  1. HUMIRA [Suspect]
     Indication: CROHN'S DISEASE
     Route: 058
     Dates: start: 20090628, end: 20090628
  2. HUMIRA [Suspect]
     Route: 058
     Dates: start: 20090712, end: 20090712
  3. HUMIRA [Suspect]
     Route: 058

REACTIONS (2)
  - MIGRAINE [None]
  - SENSORY DISTURBANCE [None]
